FAERS Safety Report 6908506-8 (Version None)
Quarter: 2010Q3

REPORT INFORMATION
  Report Type: 
  Country: None (occurrence: None)
  Receive Date: 20100805
  Receipt Date: 20100723
  Transmission Date: 20110219
  Serious: Yes (Hospitalization, Other)
  Sender: FDA-Public Use
  Company Number: US-PFIZER INC-2010085581

PATIENT
  Sex: Female
  Weight: 58.957 kg

DRUGS (3)
  1. LYRICA [Suspect]
     Indication: HEADACHE
     Dosage: 75 MG, 3X/DAY
     Route: 048
     Dates: start: 20051101
  2. LYRICA [Suspect]
     Indication: ARTHRITIS
     Dosage: 150 MG, UNK
  3. LYRICA [Suspect]
     Indication: FIBROMYALGIA

REACTIONS (3)
  - CEREBROVASCULAR ACCIDENT [None]
  - CONVULSION [None]
  - RESPIRATORY ARREST [None]
